FAERS Safety Report 9237059 (Version 1)
Quarter: 2013Q2

REPORT INFORMATION
  Report Type: Spontaneous
  Country: US (occurrence: US)
  Receive Date: 20130417
  Receipt Date: 20130417
  Transmission Date: 20140414
  Serious: No
  Sender: FDA-Public Use
  Company Number: US-009507513-1304USA008340

PATIENT
  Sex: Female

DRUGS (2)
  1. CLARITIN LIQUIGELS [Suspect]
     Indication: HYPERSENSITIVITY
     Dosage: UNK, QD
     Route: 048
  2. CLARITIN LIQUIGELS [Suspect]
     Dosage: 20 MG, ONCE
     Route: 048
     Dates: start: 20130411

REACTIONS (1)
  - Accidental overdose [Unknown]
